FAERS Safety Report 15849917 (Version 2)
Quarter: 2019Q1

REPORT INFORMATION
  Report Type: Report from Study
  Country: US (occurrence: US)
  Receive Date: 20190121
  Receipt Date: 20190225
  Transmission Date: 20190417
  Serious: Yes (Hospitalization)
  Sender: FDA-Public Use
  Company Number: US-EISAI MEDICAL RESEARCH-EC-2019-050135

PATIENT
  Sex: Male
  Weight: 93 kg

DRUGS (14)
  1. NICODERM-CQ [Concomitant]
  2. LENVIMA [Suspect]
     Active Substance: LENVATINIB
     Indication: RENAL CANCER
     Route: 048
     Dates: start: 20181227
  3. LENVIMA [Suspect]
     Active Substance: LENVATINIB
     Route: 048
     Dates: start: 2019, end: 2019
  4. METOLAZONE. [Concomitant]
     Active Substance: METOLAZONE
  5. METOPROLOL. [Concomitant]
     Active Substance: METOPROLOL
  6. PREDNISONE. [Concomitant]
     Active Substance: PREDNISONE
  7. FAMOTIDINE. [Concomitant]
     Active Substance: FAMOTIDINE
  8. AFINITOR [Concomitant]
     Active Substance: EVEROLIMUS
  9. NICORETTE [Concomitant]
     Active Substance: NICOTINE
  10. POTASSIUM [Concomitant]
     Active Substance: POTASSIUM
  11. ADVIL [Concomitant]
     Active Substance: IBUPROFEN
  12. FUROSEMIDE. [Concomitant]
     Active Substance: FUROSEMIDE
  13. PENICILLIN V POTASSIUM. [Concomitant]
     Active Substance: PENICILLIN V POTASSIUM
  14. VENLAFAXINE [Concomitant]
     Active Substance: VENLAFAXINE HYDROCHLORIDE

REACTIONS (2)
  - Dehydration [Recovered/Resolved]
  - Diarrhoea [Recovered/Resolved]

NARRATIVE: CASE EVENT DATE: 2019
